FAERS Safety Report 5362455-8 (Version None)
Quarter: 2007Q2

REPORT INFORMATION
  Report Type: 
  Country: None (occurrence: None)
  Receive Date: 20070619
  Receipt Date: 20070608
  Transmission Date: 20071010
  Serious: Yes (Other)
  Sender: FDA-Public Use
  Company Number: US-JNJFOC-20070602489

PATIENT
  Age: 35 Year
  Sex: Female
  Weight: 92.99 kg

DRUGS (9)
  1. FENTANYL TRANSDERMAL SYSTEM [Suspect]
     Indication: PAIN
     Route: 062
  2. TOPAMAX [Concomitant]
     Indication: DRUG USE FOR UNKNOWN INDICATION
     Route: 048
  3. LORTAB [Concomitant]
     Indication: NECK PAIN
     Route: 048
  4. LORTAB [Concomitant]
     Indication: BACK PAIN
     Dosage: 10/325  2AM 2PM
     Route: 048
  5. SOMA [Concomitant]
     Indication: MUSCLE RELAXANT THERAPY
     Route: 048
  6. HYZAAR [Concomitant]
     Indication: HYPERTENSION
     Route: 048
  7. ATENOLOL [Concomitant]
     Indication: HYPERTENSION
     Route: 048
  8. RELPAX [Concomitant]
     Indication: MIGRAINE
     Route: 048
  9. LYRICA [Concomitant]
     Indication: NEURALGIA
     Route: 048

REACTIONS (8)
  - ASTHENIA [None]
  - EYE PAIN [None]
  - FEELING HOT [None]
  - HEADACHE [None]
  - PARAESTHESIA [None]
  - PSYCHOMOTOR SKILLS IMPAIRED [None]
  - RETCHING [None]
  - TREMOR [None]
